FAERS Safety Report 19991120 (Version 1)
Quarter: 2021Q4

REPORT INFORMATION
  Report Type: Spontaneous
  Country: US (occurrence: US)
  Receive Date: 20211025
  Receipt Date: 20211025
  Transmission Date: 20220303
  Serious: Yes (Other)
  Sender: FDA-Public Use
  Company Number: US-STRIDES ARCOLAB LIMITED-2021SP000258

PATIENT
  Age: 41 Year
  Sex: Female

DRUGS (2)
  1. POTASSIUM CITRATE [Suspect]
     Active Substance: POTASSIUM CITRATE
     Indication: Cystinuria
     Dosage: 60 MILLIEQUIVALENT PER DAY
     Route: 065
  2. POTASSIUM CITRATE [Suspect]
     Active Substance: POTASSIUM CITRATE
     Indication: Renal lithiasis prophylaxis

REACTIONS (1)
  - Drug ineffective [Unknown]
